APPROVED DRUG PRODUCT: HEPARIN SODIUM
Active Ingredient: HEPARIN SODIUM
Strength: 5,000 UNITS/0.5ML
Dosage Form/Route: INJECTABLE;INJECTION
Application: A208827 | Product #001
Applicant: B BRAUN MEDICAL INC
Approved: Nov 19, 2018 | RLD: No | RS: No | Type: DISCN